FAERS Safety Report 12733556 (Version 1)
Quarter: 2016Q3

REPORT INFORMATION
  Report Type: Spontaneous
  Country: CH (occurrence: CH)
  Receive Date: 20160912
  Receipt Date: 20160912
  Transmission Date: 20161109
  Serious: Yes (Hospitalization)
  Sender: FDA-Public Use
  Company Number: CH-009507513-1609CHE003154

PATIENT
  Age: 84 Year
  Sex: Male
  Weight: 99 kg

DRUGS (8)
  1. COVERSUM N COMBI [Concomitant]
     Dosage: 2.5 MG, QD
     Route: 048
  2. ZOLADEX [Concomitant]
     Active Substance: GOSERELIN ACETATE
     Dosage: 1 DF, QM3
     Route: 058
  3. XARELTO [Concomitant]
     Active Substance: RIVAROXABAN
     Dosage: 15 MG, QD
     Route: 048
  4. KEYTRUDA [Suspect]
     Active Substance: PEMBROLIZUMAB
     Dosage: 1 DF, Q3W,
     Route: 041
     Dates: start: 20160714
  5. CARDIOASPIRIN [Concomitant]
     Active Substance: ASPIRIN
     Dosage: 100 MG, QD
     Route: 048
  6. TORASEMID SANDOZ [Concomitant]
     Active Substance: TORSEMIDE
     Dosage: 10 MG, QD
     Route: 048
  7. CRESTOR [Concomitant]
     Active Substance: ROSUVASTATIN CALCIUM
     Dosage: 10 MG, QD
     Route: 048
  8. MEPHANOL [Concomitant]
     Active Substance: ALLOPURINOL
     Dosage: 300 MG, QD
     Route: 048

REACTIONS (2)
  - Tubulointerstitial nephritis [Recovering/Resolving]
  - Chronic kidney disease [Recovering/Resolving]

NARRATIVE: CASE EVENT DATE: 20160728
